FAERS Safety Report 23677379 (Version 1)
Quarter: 2024Q1

REPORT INFORMATION
  Report Type: Spontaneous
  Country: US (occurrence: US)
  Receive Date: 20240327
  Receipt Date: 20240327
  Transmission Date: 20240410
  Serious: No
  Sender: FDA-Public Use
  Company Number: US-ABBVIE-5694176

PATIENT

DRUGS (1)
  1. LUMIGAN [Suspect]
     Active Substance: BIMATOPROST
     Indication: Product used for unknown indication
     Dosage: STRENGTH: 0.3MG/ML
     Route: 047

REACTIONS (1)
  - Ocular hyperaemia [Recovering/Resolving]
